FAERS Safety Report 8988966 (Version 1)
Quarter: 2012Q4

REPORT INFORMATION
  Report Type: 
  Country: US (occurrence: US)
  Receive Date: 20121228
  Receipt Date: 20121228
  Transmission Date: 20130627
  Serious: Yes (Hospitalization)
  Sender: FDA-Public Use
  Company Number: PHEH2012US025415

PATIENT
  Sex: Male

DRUGS (1)
  1. EXJADE [Suspect]
     Indication: HAEMOCHROMATOSIS
     Dosage: UNK
     Route: 048
     Dates: start: 20120703

REACTIONS (4)
  - Renal disorder [Unknown]
  - Dizziness [Unknown]
  - Loss of consciousness [Unknown]
  - Enzyme level increased [Unknown]
